FAERS Safety Report 8019785-0 (Version None)
Quarter: 2012Q1

REPORT INFORMATION
  Report Type: 
  Country: None (occurrence: None)
  Receive Date: 20120103
  Receipt Date: 20111227
  Transmission Date: 20120608
  Serious: Yes (Hospitalization)
  Sender: FDA-Public Use
  Company Number: US-TEVA-315118USA

PATIENT
  Sex: Female

DRUGS (2)
  1. AZILECT [Suspect]
     Indication: PARKINSON'S DISEASE
     Dosage: 1 MILLIGRAM;
     Route: 048
     Dates: start: 20111010, end: 20111017
  2. SINEMET [Concomitant]
     Indication: PARKINSON'S DISEASE
     Route: 048
     Dates: start: 20060101

REACTIONS (1)
  - ATRIAL FIBRILLATION [None]
